FAERS Safety Report 10276260 (Version 4)
Quarter: 2024Q2

REPORT INFORMATION
  Report Type: Report from Study
  Country: US (occurrence: US)
  Receive Date: 20140703
  Receipt Date: 20240627
  Transmission Date: 20240716
  Serious: Yes (Hospitalization)
  Sender: FDA-Public Use
  Company Number: US-JNJFOC-20140404511

PATIENT
  Age: 57 Year
  Sex: Female
  Weight: 81.6 kg

DRUGS (5)
  1. REMICADE [Suspect]
     Active Substance: INFLIXIMAB
     Indication: Psoriasis
     Route: 041
     Dates: start: 20070703, end: 20080522
  2. GENGRAF [Suspect]
     Active Substance: CYCLOSPORINE
     Indication: Product used for unknown indication
     Route: 065
  3. METHOTREXATE [Suspect]
     Active Substance: METHOTREXATE
     Indication: Product used for unknown indication
  4. ALEVE [Suspect]
     Active Substance: NAPROXEN SODIUM
     Indication: Product used for unknown indication
  5. MOBIC [Concomitant]
     Active Substance: MELOXICAM

REACTIONS (4)
  - Cytomegalovirus infection [Recovered/Resolved]
  - Clostridium difficile infection [Recovered/Resolved]
  - Diverticulitis [Unknown]
  - Diverticulum [Unknown]

NARRATIVE: CASE EVENT DATE: 20100414
